FAERS Safety Report 19941104 (Version 1)
Quarter: 2021Q4

REPORT INFORMATION
  Report Type: Spontaneous
  Country: DE (occurrence: DE)
  Receive Date: 20211012
  Receipt Date: 20211012
  Transmission Date: 20220304
  Serious: Yes (Other)
  Sender: FDA-Public Use
  Company Number: DE-DCGMA-21188676

PATIENT
  Age: 56 Year
  Sex: Female

DRUGS (1)
  1. VALSARTAN [Suspect]
     Active Substance: VALSARTAN
     Indication: Product used for unknown indication
     Dosage: ()
     Route: 065

REACTIONS (2)
  - Rectal cancer [Unknown]
  - Product quality issue [Unknown]

NARRATIVE: CASE EVENT DATE: 20200701
